FAERS Safety Report 8336983-7 (Version None)
Quarter: 2012Q2

REPORT INFORMATION
  Report Type: 
  Country: None (occurrence: None)
  Receive Date: 20120501
  Receipt Date: 20120420
  Transmission Date: 20120825
  Serious: Yes (Life-Threatening, Hospitalization)
  Sender: FDA-Public Use
  Company Number: DKLU1078770

PATIENT
  Age: 49 Year
  Sex: Female

DRUGS (4)
  1. ONFI [Suspect]
     Indication: EPILEPSY
     Dosage: 10 MG MILLIGRAM(S), 1 IN 1 D, ORAL
     Route: 048
     Dates: start: 20120127, end: 20120207
  2. TEGRETOL [Suspect]
     Indication: EPILEPSY
     Dosage: 300 MG MILLIGRAM(S), MORNING, ORAL, 300 MG MILLIGRAM(S),  EVENING, ORAL
     Route: 048
     Dates: start: 20120127, end: 20120212
  3. TEGRETOL [Suspect]
     Indication: EPILEPSY
     Dosage: 300 MG MILLIGRAM(S), MORNING, ORAL, 300 MG MILLIGRAM(S),  EVENING, ORAL
     Route: 048
     Dates: start: 20120127, end: 20120207
  4. CLONAZEPAM [Concomitant]

REACTIONS (6)
  - DRUG RASH WITH EOSINOPHILIA AND SYSTEMIC SYMPTOMS [None]
  - ACUTE HEPATIC FAILURE [None]
  - PLATELET COUNT DECREASED [None]
  - VOMITING [None]
  - EOSINOPHIL COUNT DECREASED [None]
  - HYPERTHERMIA [None]
